FAERS Safety Report 19370823 (Version 3)
Quarter: 2022Q1

REPORT INFORMATION
  Report Type: Report from Study
  Country: US (occurrence: US)
  Receive Date: 20210603
  Receipt Date: 20220215
  Transmission Date: 20220423
  Serious: Yes (Other)
  Sender: FDA-Public Use
  Company Number: US-TAKEDA-US202033658

PATIENT
  Age: 44 Year
  Sex: Female
  Weight: 72.562 kg

DRUGS (21)
  1. LANADELUMAB [Suspect]
     Active Substance: LANADELUMAB
     Indication: Hereditary angioedema
     Dosage: 300 MILLIGRAM, Q2WEEKS
     Route: 065
     Dates: start: 20190227
  2. ALBUTEROL SULFATE [Concomitant]
     Active Substance: ALBUTEROL SULFATE
     Indication: Asthma
     Dosage: 90 MICROGRAM
     Route: 055
     Dates: start: 1984
  3. AZELASTINE [Concomitant]
     Active Substance: AZELASTINE
     Indication: Rhinitis
     Dosage: 137 MICROGRAM
     Route: 045
     Dates: start: 2017
  4. FLUTICASONE FUROATE\VILANTEROL TRIFENATATE [Concomitant]
     Active Substance: FLUTICASONE FUROATE\VILANTEROL TRIFENATATE
     Indication: Asthma
     Dosage: 1 PUFFS
     Route: 055
     Dates: start: 201711
  5. EPINEPHRINE [Concomitant]
     Active Substance: EPINEPHRINE
     Indication: Anaphylaxis prophylaxis
     Dosage: 0.3 MILLIGRAM
     Route: 030
     Dates: start: 20171009
  6. LEVOCETIRIZINE [Concomitant]
     Active Substance: LEVOCETIRIZINE
     Indication: Rhinitis
     Dosage: 5 MILLIGRAM
     Route: 048
     Dates: start: 2014
  7. MONTELUKAST [Concomitant]
     Active Substance: MONTELUKAST SODIUM
     Indication: Asthma
     Dosage: 10 MILLIGRAM
     Route: 048
     Dates: start: 2014
  8. AMITRIPTYLINE [Concomitant]
     Active Substance: AMITRIPTYLINE
     Indication: Rapid eye movement sleep behaviour disorder
     Dosage: 25 MILLIGRAM
     Route: 048
     Dates: start: 201809
  9. MIDODRINE [Concomitant]
     Active Substance: MIDODRINE
     Indication: Autonomic nervous system imbalance
     Dosage: 10 MICROGRAM
     Route: 048
     Dates: start: 201811, end: 201909
  10. BENRALIZUMAB [Concomitant]
     Active Substance: BENRALIZUMAB
     Indication: Asthma
     Dosage: 30 MILLIGRAM
     Route: 058
     Dates: start: 201803
  11. FLUTICASONE [Concomitant]
     Active Substance: FLUTICASONE
     Indication: Rhinitis
     Dosage: 1 SPRAY
     Route: 045
     Dates: start: 2014
  12. MINERALS\VITAMINS [Concomitant]
     Active Substance: MINERALS\VITAMINS
     Indication: Routine health maintenance
     Dosage: 1 TABLET
     Route: 048
     Dates: start: 201904
  13. OMEGA-3 FATTY ACIDS [Concomitant]
     Active Substance: OMEGA-3 FATTY ACIDS
     Indication: Routine health maintenance
     Dosage: 1 CAPSULE
     Route: 048
     Dates: start: 201904
  14. ALBUTEROL SULFATE;IPRATROPIUM BROMIDE [Concomitant]
     Indication: Asthma
     Dosage: 3 MILLILITER
     Route: 055
     Dates: start: 2014
  15. CALCIUM [Concomitant]
     Active Substance: CALCIUM
     Indication: Bone density decreased
     Dosage: 1500 MILLIGRAM
     Route: 048
     Dates: start: 201911
  16. VITAMIN D NOS [Concomitant]
     Active Substance: VITAMIN D NOS
     Indication: Bone density decreased
     Dosage: 2000 INTERNATIONAL UNIT
     Route: 048
     Dates: start: 201911
  17. PEPCID AC [Concomitant]
     Active Substance: FAMOTIDINE
     Indication: Gastrooesophageal reflux disease
     Dosage: 20 MILLIGRAM
     Route: 048
     Dates: start: 20160607
  18. NORTHERA [Concomitant]
     Active Substance: DROXIDOPA
     Indication: Autonomic nervous system imbalance
     Dosage: 600 MILLIGRAM
     Route: 048
     Dates: start: 201909
  19. ZADITOR [KETOTIFEN] [Concomitant]
     Indication: Rhinitis allergic
     Dosage: 1 GTT DROPS
     Route: 050
     Dates: start: 201912
  20. SALINE NASAL MIST [Concomitant]
     Indication: Rhinitis allergic
     Dosage: 1 SPRAY
     Route: 045
     Dates: start: 201912
  21. SULFAMETHOXAZOLE [Concomitant]
     Active Substance: SULFAMETHOXAZOLE
     Indication: Staphylococcal infection
     Dosage: UNK
     Route: 048
     Dates: start: 20201102, end: 20201116

REACTIONS (3)
  - Staphylococcal infection [Recovered/Resolved]
  - Hereditary angioedema [Recovered/Resolved]
  - Sleep apnoea syndrome [Recovered/Resolved]

NARRATIVE: CASE EVENT DATE: 20191201
